FAERS Safety Report 6657586-6 (Version None)
Quarter: 2010Q1

REPORT INFORMATION
  Report Type: 
  Country: None (occurrence: None)
  Receive Date: 20100330
  Receipt Date: 20100319
  Transmission Date: 20100710
  Serious: Yes (Disabling, Other)
  Sender: FDA-Public Use
  Company Number: US-JNJFOC-20100303656

PATIENT
  Sex: Female
  Weight: 55.34 kg

DRUGS (4)
  1. REMICADE [Suspect]
     Indication: RHEUMATOID ARTHRITIS
     Route: 042
  2. REMICADE [Suspect]
     Route: 042
  3. SLEEPING PILL NOS [Concomitant]
     Indication: SLEEP DISORDER
  4. ANTIHISTAMINE [Concomitant]
     Indication: ANAPHYLACTIC REACTION

REACTIONS (10)
  - ANAPHYLACTIC REACTION [None]
  - HYPOAESTHESIA [None]
  - MOTOR DYSFUNCTION [None]
  - MUSCULOSKELETAL STIFFNESS [None]
  - NEURALGIA [None]
  - PAIN [None]
  - PAIN IN EXTREMITY [None]
  - PARAESTHESIA [None]
  - RASH [None]
  - TEMPERATURE INTOLERANCE [None]
